FAERS Safety Report 11848451 (Version 2)
Quarter: 2016Q1

REPORT INFORMATION
  Report Type: Report from Study
  Country: AU (occurrence: AU)
  Receive Date: 20151218
  Receipt Date: 20160304
  Transmission Date: 20160526
  Serious: Yes (Hospitalization)
  Sender: FDA-Public Use
  Company Number: AU-ROCHE-1371998

PATIENT
  Age: 63 Year
  Sex: Female
  Weight: 59.9 kg

DRUGS (8)
  1. BENDAMUSTINE [Suspect]
     Active Substance: BENDAMUSTINE
     Indication: NON-HODGKIN^S LYMPHOMA UNSPECIFIED HISTOLOGY INDOLENT
     Dosage: DOSE OF LAST BENDAMUSTINE TAKEN 150 MG, DATE OF MOST RECENT DOSE OF BENDAMUSTINE PRIOR TO AE ONSET :
     Route: 042
     Dates: start: 20131128
  2. OBINUTUZUMAB [Suspect]
     Active Substance: OBINUTUZUMAB
     Indication: NON-HODGKIN^S LYMPHOMA UNSPECIFIED HISTOLOGY INDOLENT
     Dosage: VOLUME OF LAST OBNITUZUMAB TAKEN: 250 ML, DOSE CONCENTRATION OF LAST OBNITUZUMAB TAKEN: 4 MG/ML, DAT
     Route: 042
     Dates: start: 20131128
  3. ACICLOVIR [Concomitant]
     Active Substance: ACYCLOVIR
     Indication: PROPHYLAXIS
     Route: 065
     Dates: start: 20131025, end: 20150115
  4. PANADOL (AUSTRALIA) [Concomitant]
     Indication: PROPHYLAXIS
     Route: 065
     Dates: start: 20131128, end: 20141216
  5. METOCLOPRAMIDE HYDROCHLORIDE. [Concomitant]
     Active Substance: METOCLOPRAMIDE HYDROCHLORIDE
     Indication: NAUSEA
     Route: 065
     Dates: start: 20131128, end: 20140624
  6. VORICONAZOLE. [Concomitant]
     Active Substance: VORICONAZOLE
     Indication: PROPHYLAXIS
     Route: 065
     Dates: start: 20131127, end: 20140426
  7. TROPISETRON [Concomitant]
     Active Substance: TROPISETRON
     Indication: NAUSEA
     Route: 065
     Dates: start: 20131128, end: 20140322
  8. LORATADINE. [Concomitant]
     Active Substance: LORATADINE
     Indication: PROPHYLAXIS
     Route: 065
     Dates: start: 20131128, end: 20141216

REACTIONS (1)
  - Febrile neutropenia [Recovered/Resolved]

NARRATIVE: CASE EVENT DATE: 20140325
